FAERS Safety Report 4394514-0 (Version None)
Quarter: 2004Q3

REPORT INFORMATION
  Report Type: 
  Country: None (occurrence: None)
  Receive Date: 20040706
  Receipt Date: 20040622
  Transmission Date: 20050211
  Serious: No
  Sender: FDA-Public Use
  Company Number: 04H-163-0264696-00

PATIENT
  Age: 70 Year
  Sex: Male

DRUGS (1)
  1. HEPARIN SODIUM [Suspect]
     Dosage: NOT REPORTED

REACTIONS (6)
  - ARTERIAL THROMBOSIS [None]
  - ARTERIAL THROMBOSIS LIMB [None]
  - ASTHENIA [None]
  - CEREBROVASCULAR ACCIDENT [None]
  - THROMBOCYTOPENIA [None]
  - TOE AMPUTATION [None]
